FAERS Safety Report 13105457 (Version 1)
Quarter: 2017Q1

REPORT INFORMATION
  Report Type: Spontaneous
  Country: GB (occurrence: GB)
  Receive Date: 20170111
  Receipt Date: 20170111
  Transmission Date: 20170428
  Serious: Yes (Other)
  Sender: FDA-Public Use
  Company Number: GB-MALLINCKRODT-T201605351

PATIENT
  Age: 66 Year
  Sex: Female

DRUGS (2)
  1. UVADEX [Suspect]
     Active Substance: METHOXSALEN
     Dosage: 3.1 ML, SINGLE
     Route: 057
     Dates: start: 20160624, end: 20160624
  2. UVADEX [Suspect]
     Active Substance: METHOXSALEN
     Indication: PRODUCT USED FOR UNKNOWN INDICATION
     Dosage: 3.7 ML, SINGLE
     Route: 057
     Dates: start: 20160623, end: 20160623

REACTIONS (3)
  - Rash macular [Recovered/Resolved]
  - Pruritus [Recovered/Resolved]
  - Photosensitivity reaction [Recovered/Resolved]

NARRATIVE: CASE EVENT DATE: 20160625
